FAERS Safety Report 25763762 (Version 1)
Quarter: 2025Q3

REPORT INFORMATION
  Report Type: Spontaneous
  Country: US (occurrence: US)
  Receive Date: 20250905
  Receipt Date: 20250905
  Transmission Date: 20251021
  Serious: No
  Sender: DOMPE FARMACEUTICI
  Company Number: US-FARMAPROD-202411-3799

PATIENT
  Sex: Female

DRUGS (25)
  1. OXERVATE [Suspect]
     Active Substance: CENEGERMIN-BKBJ
     Indication: Ulcerative keratitis
     Route: 047
     Dates: start: 20241002
  2. OXERVATE [Suspect]
     Active Substance: CENEGERMIN-BKBJ
     Indication: Neurotrophic keratopathy
  3. NOVOLOG [Concomitant]
     Active Substance: INSULIN ASPART
  4. LANTUS [Concomitant]
     Active Substance: INSULIN GLARGINE
  5. ATORVASTATIN CALCIUM [Concomitant]
     Active Substance: ATORVASTATIN CALCIUM
  6. VITAMIN D3 [Concomitant]
     Active Substance: CHOLECALCIFEROL
  7. SPIRONOLACTONE [Concomitant]
     Active Substance: SPIRONOLACTONE
  8. VITAMIN C [Concomitant]
     Active Substance: ASCORBIC ACID
  9. DOCUSATE SODIUM [Concomitant]
     Active Substance: DOCUSATE SODIUM
  10. FERROUS SULFATE [Concomitant]
     Active Substance: FERROUS SULFATE
  11. DEXLANSOPRAZOLE [Concomitant]
     Active Substance: DEXLANSOPRAZOLE
  12. ZINC [Concomitant]
     Active Substance: ZINC
  13. TORSEMIDE [Concomitant]
     Active Substance: TORSEMIDE
  14. RYBELSUS [Concomitant]
     Active Substance: SEMAGLUTIDE
  15. ELIQUIS [Concomitant]
     Active Substance: APIXABAN
  16. LEVOTHYROXINE SODIUM [Concomitant]
     Active Substance: LEVOTHYROXINE SODIUM
  17. FARXIGA [Concomitant]
     Active Substance: DAPAGLIFLOZIN PROPANEDIOL
  18. METOPROLOL TARTRATE [Concomitant]
     Active Substance: METOPROLOL TARTRATE
  19. ALPHAGAN P [Concomitant]
     Active Substance: BRIMONIDINE TARTRATE
  20. PRED FORTE [Concomitant]
     Active Substance: PREDNISOLONE ACETATE
  21. SYSTANE COMPLETE PF [Concomitant]
     Active Substance: PROPYLENE GLYCOL
  22. COMBIGAN [Concomitant]
     Active Substance: BRIMONIDINE TARTRATE\TIMOLOL MALEATE
  23. LOSARTAN POTASSIUM [Concomitant]
     Active Substance: LOSARTAN POTASSIUM
  24. MONTELUKAST SODIUM [Concomitant]
     Active Substance: MONTELUKAST SODIUM
  25. GATIFLOXACIN [Concomitant]
     Active Substance: GATIFLOXACIN

REACTIONS (1)
  - Lacrimation increased [Unknown]
